FAERS Safety Report 9115614 (Version 1)
Quarter: 2013Q1

REPORT INFORMATION
  Report Type: Spontaneous
  Country: DE (occurrence: DE)
  Receive Date: 20130225
  Receipt Date: 20130225
  Transmission Date: 20140127
  Serious: Yes (Life-Threatening, Hospitalization)
  Sender: FDA-Public Use
  Company Number: DE-US-EMD SERONO, INC.-7194576

PATIENT
  Age: 33 Year
  Sex: Female

DRUGS (1)
  1. REBIF [Suspect]
     Indication: MULTIPLE SCLEROSIS
     Route: 058
     Dates: start: 20120601

REACTIONS (5)
  - Thrombocytopenia [Unknown]
  - Epistaxis [Unknown]
  - Lip blister [Unknown]
  - Contusion [Unknown]
  - Injection site haemorrhage [Unknown]
